FAERS Safety Report 4551610-2 (Version None)
Quarter: 2005Q1

REPORT INFORMATION
  Report Type: 
  Country: None (occurrence: None)
  Receive Date: 20050107
  Receipt Date: 20041230
  Transmission Date: 20050727
  Serious: Yes (Hospitalization)
  Sender: FDA-Public Use
  Company Number: K200401978

PATIENT
  Age: 66 Year
  Sex: Male

DRUGS (7)
  1. ALTACE [Suspect]
     Dosage: 5 MG QD ORAL
     Route: 048
     Dates: start: 20040422, end: 20040401
  2. ALTACE [Suspect]
     Dosage: 5 MG QD ORAL
     Route: 048
     Dates: end: 20040419
  3. ALTACE [Suspect]
     Dosage: 5 MG QD ORAL
     Route: 048
     Dates: start: 20040430, end: 20040430
  4. ALDACTONE [Concomitant]
  5. CORDARONE [Concomitant]
  6. LASILIX (FUROSEMIDE) [Concomitant]
  7. SINTROM [Concomitant]

REACTIONS (4)
  - DEHYDRATION [None]
  - DIARRHOEA [None]
  - HYPERKALAEMIA [None]
  - RENAL FAILURE ACUTE [None]
